FAERS Safety Report 24282182 (Version 1)
Quarter: 2024Q3

REPORT INFORMATION
  Report Type: Spontaneous
  Country: US (occurrence: None)
  Receive Date: 20240902
  Receipt Date: 20240902
  Transmission Date: 20241017
  Serious: Yes (Life-Threatening, Disabling, Other)
  Sender: Public
  Company Number: None

PATIENT
  Age: 48 Year
  Sex: Male
  Weight: 74.25 kg

DRUGS (2)
  1. OTEZLA [Suspect]
     Active Substance: APREMILAST
     Dosage: FREQUENCY : DAILY;?
     Route: 048
     Dates: start: 20230201, end: 20231026
  2. SOTYKTU [Concomitant]
     Active Substance: DEUCRAVACITINIB

REACTIONS (15)
  - Diarrhoea [None]
  - Headache [None]
  - Nausea [None]
  - Mental disorder [None]
  - Paranoia [None]
  - Psoriasis [None]
  - Haemorrhage [None]
  - Drug dependence [None]
  - Back pain [None]
  - Cyst [None]
  - Erythema [None]
  - Weight decreased [None]
  - Skin exfoliation [None]
  - Bone loss [None]
  - Feeling abnormal [None]

NARRATIVE: CASE EVENT DATE: 20231025
